FAERS Safety Report 7215983-4 (Version None)
Quarter: 2011Q1

REPORT INFORMATION
  Report Type: 
  Country: None (occurrence: None)
  Receive Date: 20110107
  Receipt Date: 20110103
  Transmission Date: 20110831
  Serious: Yes (Death, Hospitalization, Other)
  Sender: FDA-Public Use
  Company Number: FR-JNJFOC-20100900209

PATIENT
  Age: 60 Year
  Sex: Male

DRUGS (1)
  1. REMICADE [Suspect]
     Indication: ERYTHRODERMIC PSORIASIS
     Route: 042

REACTIONS (5)
  - LYMPHOCYTE COUNT [None]
  - FUNGAL INFECTION [None]
  - NEUTROPHILIA [None]
  - TUBERCULOSIS [None]
  - PYREXIA [None]
